FAERS Safety Report 6526315-9 (Version None)
Quarter: 2010Q1

REPORT INFORMATION
  Report Type: 
  Country: None (occurrence: None)
  Receive Date: 20100105
  Receipt Date: 20091103
  Transmission Date: 20100710
  Serious: Yes (Other)
  Sender: FDA-Public Use
  Company Number: IT-RANBAXY-2009US-29852

PATIENT

DRUGS (4)
  1. PARACETAMOL [Suspect]
     Indication: DRUG USE FOR UNKNOWN INDICATION
     Dosage: UNK, UNK
     Route: 065
  2. NITROGLYCERINE TRANSDERMAL [Suspect]
     Indication: DRUG USE FOR UNKNOWN INDICATION
     Route: 065
  3. ZOLEDRONIC ACID [Suspect]
     Indication: DRUG USE FOR UNKNOWN INDICATION
     Route: 065
  4. EXEMESTANE [Suspect]
     Indication: DRUG USE FOR UNKNOWN INDICATION
     Route: 065

REACTIONS (1)
  - OSTEONECROSIS [None]
